FAERS Safety Report 9426323 (Version 1)
Quarter: 2013Q3

REPORT INFORMATION
  Report Type: Spontaneous
  Country: US (occurrence: None)
  Receive Date: 20130729
  Receipt Date: 20130729
  Transmission Date: 20140515
  Serious: Yes (Disabling)
  Sender: FDA-Public Use
  Company Number: None

PATIENT
  Age: 60 Year
  Sex: Female
  Weight: 102.06 kg

DRUGS (8)
  1. DOXYCYCLINE [Suspect]
     Indication: LYME DISEASE
     Route: 048
     Dates: start: 20130710, end: 20130714
  2. VICTOZA [Concomitant]
  3. LIPITOR 40MG [Concomitant]
  4. FIORICET [Concomitant]
  5. LOTRISONE LOTION [Concomitant]
  6. VOLAREN GEL [Concomitant]
  7. CHEWABLE MULTI-VITAMIN [Concomitant]
  8. CHEWABLE CALCIUM 600 + D [Concomitant]

REACTIONS (8)
  - Chest pain [None]
  - Headache [None]
  - Nausea [None]
  - Fatigue [None]
  - Asthenia [None]
  - Ear pain [None]
  - Dyspnoea [None]
  - Pain [None]
